FAERS Safety Report 5368944-4 (Version None)
Quarter: 2007Q2

REPORT INFORMATION
  Report Type: 
  Country: None (occurrence: None)
  Receive Date: 20070620
  Receipt Date: 20070608
  Transmission Date: 20071010
  Serious: Yes (Other)
  Sender: FDA-Public Use
  Company Number: 100#03#2007-02156

PATIENT
  Age: 53 Year
  Sex: Male

DRUGS (6)
  1. CITALOPRAM HYDROBROMIDE [Suspect]
     Indication: DRUG USE FOR UNKNOWN INDICATION
     Dosage: 20MG (FROM MAY 2006 TO DECEMBER 2006), 40 MG (FROM DECEMBER 2006 TO JANUARY 2007), ORAL
     Route: 048
     Dates: start: 20060501, end: 20061201
  2. CITALOPRAM HYDROBROMIDE [Suspect]
     Indication: DRUG USE FOR UNKNOWN INDICATION
     Dosage: 20MG (FROM MAY 2006 TO DECEMBER 2006), 40 MG (FROM DECEMBER 2006 TO JANUARY 2007), ORAL
     Route: 048
     Dates: start: 20061201, end: 20070101
  3. ACETYLSALICYLIC ACID (ACETYLSALICYLIC ACID) (ACETYLSALICYLIC ACID) [Concomitant]
  4. METFORMIN (METFORMIN) (METFORMIN) [Concomitant]
  5. PRAVASTATIN [Concomitant]
  6. SILDENAFIL (SILDENAFIL) (SILDENAFIL) [Concomitant]

REACTIONS (1)
  - NIGHTMARE [None]
